FAERS Safety Report 11202793 (Version 1)
Quarter: 2015Q2

REPORT INFORMATION
  Report Type: Spontaneous
  Country: US (occurrence: None)
  Receive Date: 20150618
  Receipt Date: 20150618
  Transmission Date: 20150821
  Serious: Yes (Hospitalization)
  Sender: FDA-Public Use
  Company Number: None

PATIENT
  Age: 34 Year
  Sex: Male
  Weight: 60.5 kg

DRUGS (2)
  1. RIFAMPIN. [Suspect]
     Active Substance: RIFAMPIN
     Indication: ARTHRITIS BACTERIAL
     Route: 048
     Dates: start: 20121120, end: 20121205
  2. VANCOMYCIN [Suspect]
     Active Substance: VANCOMYCIN
     Indication: ARTHRITIS BACTERIAL
     Route: 042
     Dates: start: 20121114, end: 20121205

REACTIONS (13)
  - Rash erythematous [None]
  - Drug reaction with eosinophilia and systemic symptoms [None]
  - Pyrexia [None]
  - Eosinophilia [None]
  - Liver function test abnormal [None]
  - Pain in extremity [None]
  - Chills [None]
  - Dyspnoea [None]
  - Odynophagia [None]
  - Malaise [None]
  - Pruritus [None]
  - Cough [None]
  - Urticaria [None]

NARRATIVE: CASE EVENT DATE: 20121124
